FAERS Safety Report 13059791 (Version 1)
Quarter: 2016Q4

REPORT INFORMATION
  Report Type: Spontaneous
  Country: US (occurrence: US)
  Receive Date: 20161223
  Receipt Date: 20161223
  Transmission Date: 20170207
  Serious: Yes (Other)
  Sender: FDA-Public Use
  Company Number: US-BRACCO-014242

PATIENT
  Age: 82 Year
  Sex: Male

DRUGS (1)
  1. GASTROGRAFIN [Suspect]
     Active Substance: DIATRIZOATE MEGLUMINE\DIATRIZOATE SODIUM
     Indication: X-RAY WITH CONTRAST LOWER GASTROINTESTINAL TRACT

REACTIONS (2)
  - Venous intravasation [Recovering/Resolving]
  - Acute kidney injury [Recovering/Resolving]
